FAERS Safety Report 8265897-6 (Version None)
Quarter: 2012Q2

REPORT INFORMATION
  Report Type: 
  Country: None (occurrence: None)
  Receive Date: 20120406
  Receipt Date: 20120327
  Transmission Date: 20120825
  Serious: Yes (Death)
  Sender: FDA-Public Use
  Company Number: JP-GLAXOSMITHKLINE-B0793558A

PATIENT
  Age: 57 Year
  Sex: Male

DRUGS (5)
  1. FLUDARABINE PHOSPHATE [Suspect]
     Indication: STEM CELL TRANSPLANT
     Route: 065
  2. CYTARABINE [Suspect]
     Indication: STEM CELL TRANSPLANT
     Route: 065
  3. MELPHALAN HYDROCHLORIDE [Suspect]
     Indication: STEM CELL TRANSPLANT
     Route: 065
  4. CYCLOSPORINE [Suspect]
     Dosage: 3MGK PER DAY
  5. METHOTREXATE [Concomitant]

REACTIONS (16)
  - HYPERBILIRUBINAEMIA [None]
  - STOMATITIS [None]
  - GRAFT VERSUS HOST DISEASE IN SKIN [None]
  - DIARRHOEA [None]
  - PNEUMONIA CYTOMEGALOVIRAL [None]
  - PYREXIA [None]
  - RASH [None]
  - GASTROINTESTINAL TOXICITY [None]
  - HYPOXIA [None]
  - CONVULSION [None]
  - ENGRAFTMENT SYNDROME [None]
  - ALTERED STATE OF CONSCIOUSNESS [None]
  - BLOOD BILIRUBIN INCREASED [None]
  - THROMBOTIC MICROANGIOPATHY [None]
  - HEPATOTOXICITY [None]
  - MENINGITIS VIRAL [None]
